FAERS Safety Report 15375559 (Version 1)
Quarter: 2018Q3

REPORT INFORMATION
  Report Type: Report from Study
  Country: DK (occurrence: DK)
  Receive Date: 20180912
  Receipt Date: 20180912
  Transmission Date: 20181010
  Serious: Yes (Other)
  Sender: FDA-Public Use
  Company Number: DK-TAKEDA-2018MPI011465

PATIENT

DRUGS (5)
  1. CYCLOPHOSPHAMIDE. [Suspect]
     Active Substance: CYCLOPHOSPHAMIDE
     Indication: PLASMA CELL MYELOMA
     Dosage: 500 MG/M2, UNK
     Route: 042
  2. CLARITHROMYCIN. [Interacting]
     Active Substance: CLARITHROMYCIN
     Indication: PLASMA CELL MYELOMA
     Dosage: 500 MG, BID
     Route: 048
  3. CYCLOPHOSPHAMIDE. [Suspect]
     Active Substance: CYCLOPHOSPHAMIDE
     Dosage: 2000 MG/M2, UNK
     Route: 042
  4. DEXAMETHASONE. [Suspect]
     Active Substance: DEXAMETHASONE
     Indication: PLASMA CELL MYELOMA
     Dosage: 40 MG, UNK
     Route: 048
  5. BORTEZOMIB. [Suspect]
     Active Substance: BORTEZOMIB
     Indication: PLASMA CELL MYELOMA
     Dosage: 1.3 MG/M2, UNK
     Route: 058

REACTIONS (7)
  - Neurotoxicity [Unknown]
  - Neuropathy peripheral [Unknown]
  - Adverse event [Unknown]
  - Drug interaction [Unknown]
  - Ileus paralytic [Unknown]
  - Thrombocytopenia [Unknown]
  - Constipation [Unknown]
